FAERS Safety Report 14247642 (Version 1)
Quarter: 2017Q4

REPORT INFORMATION
  Report Type: Spontaneous
  Country: GB (occurrence: GB)
  Receive Date: 20171204
  Receipt Date: 20171204
  Transmission Date: 20180321
  Serious: Yes (Hospitalization)
  Sender: FDA-Public Use
  Company Number: GB-SA-2017SA197834

PATIENT
  Age: 3 Year
  Sex: Male

DRUGS (1)
  1. MYOZYME [Suspect]
     Active Substance: ALGLUCOSIDASE ALFA
     Route: 041
     Dates: end: 20171006

REACTIONS (9)
  - Drooling [Unknown]
  - Oxygen saturation decreased [Unknown]
  - Feeling cold [Unknown]
  - Malaise [Unknown]
  - Cold sweat [Unknown]
  - Rash macular [Recovered/Resolved]
  - Heart rate increased [Unknown]
  - Cyanosis [Unknown]
  - Body temperature increased [Unknown]

NARRATIVE: CASE EVENT DATE: 20171006
